FAERS Safety Report 6104016-9 (Version None)
Quarter: 2009Q1

REPORT INFORMATION
  Report Type: 
  Country: None (occurrence: None)
  Receive Date: 20090305
  Receipt Date: 20090302
  Transmission Date: 20090719
  Serious: Yes (Death)
  Sender: FDA-Public Use
  Company Number: FI-ASTRAZENECA-2009SE00972

PATIENT
  Age: 44 Year
  Sex: Male

DRUGS (3)
  1. NEXIUM [Suspect]
     Indication: OESOPHAGITIS
     Route: 048
     Dates: start: 20090201
  2. NEXIUM [Suspect]
     Indication: ANGINA PECTORIS
     Route: 048
     Dates: start: 20090201
  3. TIZANIDINE HCL [Concomitant]
     Indication: BACK PAIN
     Route: 048
     Dates: start: 20090201

REACTIONS (3)
  - MEDICATION ERROR [None]
  - MYOCARDIAL INFARCTION [None]
  - ROAD TRAFFIC ACCIDENT [None]
